FAERS Safety Report 21301793 (Version 1)
Quarter: 2022Q3

REPORT INFORMATION
  Report Type: Spontaneous
  Country: US (occurrence: None)
  Receive Date: 20220906
  Receipt Date: 20220906
  Transmission Date: 20221026
  Serious: Yes (Other)
  Sender: FDA-Public Use
  Company Number: None

PATIENT
  Age: 46 Year
  Sex: Female
  Weight: 89.46 kg

DRUGS (6)
  1. SUBOXONE [Suspect]
     Active Substance: BUPRENORPHINE HYDROCHLORIDE\NALOXONE HYDROCHLORIDE
     Indication: Drug use disorder
     Dosage: FREQUENCY : TWICE A DAY;?
     Route: 060
     Dates: start: 20220720
  2. DULOXETINE [Concomitant]
     Active Substance: DULOXETINE
  3. FAMOTIDINE [Concomitant]
     Active Substance: FAMOTIDINE
  4. HYDROXYZINE [Concomitant]
     Active Substance: HYDROXYZINE HYDROCHLORIDE
  5. MIRTAZAPINE [Concomitant]
     Active Substance: MIRTAZAPINE
  6. LAMOTRIGINE [Concomitant]
     Active Substance: LAMOTRIGINE
     Dates: start: 20220819

REACTIONS (2)
  - Oedema peripheral [None]
  - Oedema peripheral [None]

NARRATIVE: CASE EVENT DATE: 20220831
